FAERS Safety Report 15588035 (Version 1)
Quarter: 2018Q4

REPORT INFORMATION
  Report Type: Spontaneous
  Country: US (occurrence: US)
  Receive Date: 20181105
  Receipt Date: 20181105
  Transmission Date: 20190205
  Serious: No
  Sender: FDA-Public Use
  Company Number: US-PFIZER INC-2018443054

PATIENT
  Sex: Male

DRUGS (2)
  1. NEURONTIN [Suspect]
     Active Substance: GABAPENTIN
     Dosage: 850 MG, DAILY (TAKING 3 OF THOSE A DAY, 850 MG)
  2. GABAPENTIN. [Suspect]
     Active Substance: GABAPENTIN
     Dosage: 850 MG, DAILY (TAKING 3 OF THOSE A DAY, 850 MG)

REACTIONS (1)
  - Drug ineffective [Unknown]
